FAERS Safety Report 18988329 (Version 2)
Quarter: 2021Q1

REPORT INFORMATION
  Report Type: Other
  Country: CA (occurrence: CA)
  Receive Date: 20210309
  Receipt Date: 20210313
  Transmission Date: 20210420
  Serious: No
  Sender: FDA-Public Use
  Company Number: CA-ROCHE-2786273

PATIENT
  Sex: Female

DRUGS (2)
  1. OCREVUS [Suspect]
     Active Substance: OCRELIZUMAB
     Indication: RELAPSING-REMITTING MULTIPLE SCLEROSIS
     Dosage: 300 MG AT DAY 0 AND 14, THEN 600 MG IN 6 MONTHS
     Route: 042
     Dates: start: 20180720
  2. ABREVA [Concomitant]
     Active Substance: DOCOSANOL

REACTIONS (1)
  - Oral herpes [Recovering/Resolving]
